FAERS Safety Report 7949919-5 (Version None)
Quarter: 2011Q4

REPORT INFORMATION
  Report Type: 
  Country: None (occurrence: None)
  Receive Date: 20111130
  Receipt Date: 20111121
  Transmission Date: 20120403
  Serious: Yes (Hospitalization)
  Sender: FDA-Public Use
  Company Number: JP-ASTRAZENECA-2011SE60769

PATIENT
  Age: 84 Year
  Sex: Male
  Weight: 51 kg

DRUGS (11)
  1. MICAMLO [Concomitant]
     Indication: HYPERTENSION
     Route: 048
     Dates: end: 20111020
  2. ADALAT [Concomitant]
     Indication: HYPERTENSION
     Dates: end: 20111020
  3. DECADRON [Concomitant]
     Indication: PROSTATE CANCER
     Dates: end: 20111020
  4. LOXOPROFEN [Concomitant]
     Indication: PROSTATE CANCER
     Route: 048
     Dates: end: 20111020
  5. KETAS [Concomitant]
     Indication: CEREBRAL INFARCTION
     Route: 048
     Dates: end: 20111020
  6. FAMOTIDINE [Concomitant]
     Indication: GASTRITIS
     Route: 048
     Dates: end: 20111020
  7. TERNELLIN [Concomitant]
     Indication: CEREBRAL INFARCTION
     Dates: end: 20111020
  8. ZOLADEX [Suspect]
     Indication: PROSTATE CANCER
     Route: 058
     Dates: start: 20080331, end: 20110822
  9. ALINAMIN-F [Concomitant]
     Indication: PROPHYLAXIS
     Dates: end: 20111020
  10. ROCALTROL [Concomitant]
     Indication: PROPHYLAXIS
     Route: 048
     Dates: end: 20111020
  11. ZOMETA [Concomitant]
     Indication: PROSTATE CANCER
     Route: 042
     Dates: start: 20080331, end: 20110926

REACTIONS (2)
  - HYPERCHOLESTEROLAEMIA [None]
  - LIPIDS ABNORMAL [None]
